FAERS Safety Report 7508194-6 (Version None)
Quarter: 2011Q2

REPORT INFORMATION
  Report Type: 
  Country: None (occurrence: None)
  Receive Date: 20110527
  Receipt Date: 20110303
  Transmission Date: 20111010
  Serious: No
  Sender: FDA-Public Use
  Company Number: US-MYLANLABS-2011S1001552

PATIENT
  Age: 27 Year
  Sex: Female

DRUGS (1)
  1. LANSOPRAZOLE [Suspect]
     Indication: GASTROOESOPHAGEAL REFLUX DISEASE
     Route: 048
     Dates: start: 20101223, end: 20110105

REACTIONS (2)
  - DIARRHOEA [None]
  - INCORRECT DOSE ADMINISTERED [None]
